FAERS Safety Report 4511252-1 (Version None)
Quarter: 2004Q4

REPORT INFORMATION
  Report Type: 
  Country: None (occurrence: None)
  Receive Date: 20041122
  Receipt Date: 20041122
  Transmission Date: 20050328
  Serious: No
  Sender: FDA-Public Use
  Company Number: None

PATIENT
  Age: 60 Year
  Sex: Male

DRUGS (8)
  1. LISINOPRIL [Suspect]
     Indication: HYPERTENSION
     Dosage: 5MG  ONCE ORAL
     Route: 048
     Dates: start: 20041023, end: 20041023
  2. METOPROLOL  50MG [Suspect]
     Indication: ANGINA PECTORIS
     Dosage: 50MG, 25MG ONCE EACH ORAL
     Route: 048
     Dates: start: 20041023, end: 20041024
  3. METOPROLOL  50MG [Suspect]
     Indication: HYPERTENSION
     Dosage: 50MG, 25MG ONCE EACH ORAL
     Route: 048
     Dates: start: 20041023, end: 20041024
  4. LIPITOR [Concomitant]
  5. EFFEXOR [Concomitant]
  6. ZOLOFT [Concomitant]
  7. NITROGLYCERIN [Concomitant]
  8. NITROGLYCERINE OINTMENT [Concomitant]

REACTIONS (5)
  - BLOOD CREATININE INCREASED [None]
  - CORONARY ARTERY DISEASE [None]
  - HEART RATE DECREASED [None]
  - HYPOPERFUSION [None]
  - HYPOTENSION [None]
